FAERS Safety Report 7817560-0 (Version None)
Quarter: 2011Q4

REPORT INFORMATION
  Report Type: 
  Country: None (occurrence: None)
  Receive Date: 20111017
  Receipt Date: 20111003
  Transmission Date: 20120403
  Serious: Yes (Other)
  Sender: FDA-Public Use
  Company Number: PHHY2011BR88166

PATIENT
  Sex: Female

DRUGS (2)
  1. PROVERA [Concomitant]
     Indication: UTERINE LEIOMYOMA
     Dosage: UNK
     Dates: start: 20110903
  2. METHERGINE [Suspect]
     Indication: HAEMORRHAGE
     Dosage: 0.125 MG, QD, FOR 4 CONSECUTIVE DAYS FOLLOWED BY A PAUSE OF 20 DAYS
     Route: 048

REACTIONS (1)
  - VAGINAL HAEMORRHAGE [None]
